FAERS Safety Report 6996697-2 (Version None)
Quarter: 2010Q3

REPORT INFORMATION
  Report Type: 
  Country: None (occurrence: None)
  Receive Date: 20100918
  Receipt Date: 20090622
  Transmission Date: 20110219
  Serious: No
  Sender: FDA-Public Use
  Company Number: US-WYE-H09877109

PATIENT
  Sex: Female

DRUGS (1)
  1. EFFEXOR XR [Suspect]
     Indication: DEPRESSION
     Dosage: 225 MG, FREQUENCY NOT SPECIFIED
     Route: 048
     Dates: start: 20040101

REACTIONS (2)
  - DRUG EFFECT DECREASED [None]
  - MEDICATION RESIDUE [None]
